FAERS Safety Report 11824584 (Version 1)
Quarter: 2015Q4

REPORT INFORMATION
  Report Type: Spontaneous
  Country: US (occurrence: US)
  Receive Date: 20151210
  Receipt Date: 20151210
  Transmission Date: 20160305
  Serious: No
  Sender: FDA-Public Use
  Company Number: US-TARO-2015TAR00672

PATIENT
  Age: 7 Year
  Sex: Female
  Weight: 20.41 kg

DRUGS (1)
  1. HYDROCORTISONE CREAM USP 2.5% [Suspect]
     Active Substance: HYDROCORTISONE
     Indication: ARTHROPOD BITE
     Dosage: AS MUCH AS WAS NEEDED TO COVER MOSQUITO BITES, 2X/DAY OR 3X/DAY
     Route: 061
     Dates: start: 20150710, end: 20150713

REACTIONS (1)
  - Rash [Recovering/Resolving]

NARRATIVE: CASE EVENT DATE: 20150713
